FAERS Safety Report 11652818 (Version 1)
Quarter: 2015Q4

REPORT INFORMATION
  Report Type: Spontaneous
  Country: IN (occurrence: IN)
  Receive Date: 20151022
  Receipt Date: 20151022
  Transmission Date: 20160304
  Serious: Yes (Death, Hospitalization)
  Sender: FDA-Public Use
  Company Number: IN-PFIZER INC-2015342188

PATIENT
  Age: 63 Year
  Sex: Male

DRUGS (1)
  1. SUTENT [Suspect]
     Active Substance: SUNITINIB MALATE
     Indication: METASTATIC RENAL CELL CARCINOMA
     Dosage: 50 MG, 1X/DAY
     Route: 048
     Dates: start: 20150416

REACTIONS (5)
  - Decreased appetite [Unknown]
  - Disease progression [Fatal]
  - Metastatic renal cell carcinoma [Fatal]
  - Amnesia [Unknown]
  - Hypophagia [Unknown]
